FAERS Safety Report 9205814 (Version 1)
Quarter: 2013Q2

REPORT INFORMATION
  Report Type: Spontaneous
  Country: US (occurrence: None)
  Receive Date: 20130401
  Receipt Date: 20130401
  Transmission Date: 20140414
  Serious: Yes (Death)
  Sender: FDA-Public Use
  Company Number: ALK-2013-001407

PATIENT
  Sex: 0

DRUGS (1)
  1. VIVITROL (VIVITROL_NDA) INJECTION, 380MG [Suspect]
     Indication: DRUG DEPENDENCE
     Route: 030
     Dates: start: 20120418

REACTIONS (1)
  - Completed suicide [None]
